FAERS Safety Report 5564482-4 (Version None)
Quarter: 2007Q4

REPORT INFORMATION
  Report Type: 
  Country: None (occurrence: None)
  Receive Date: 20071218
  Receipt Date: 20071211
  Transmission Date: 20080405
  Serious: Yes (Life-Threatening, Hospitalization)
  Sender: FDA-Public Use
  Company Number: US-BAYER-200713038BWH

PATIENT
  Age: 58 Year
  Sex: Female
  Weight: 165 kg

DRUGS (14)
  1. NEXAVAR [Suspect]
     Indication: RENAL CELL CARCINOMA STAGE UNSPECIFIED
     Dosage: TOTAL DAILY DOSE: 800 MG  UNIT DOSE: 200 MG
     Route: 048
     Dates: start: 20061101, end: 20070101
  2. NEXAVAR [Suspect]
     Dosage: TOTAL DAILY DOSE: 400 MG  UNIT DOSE: 200 MG
     Route: 048
     Dates: start: 20070101, end: 20070706
  3. GLIPIZIDE [Concomitant]
     Dosage: TOTAL DAILY DOSE: 20 MG
     Route: 048
  4. AVANDIA [Concomitant]
     Route: 048
  5. KLOR-CON [Concomitant]
     Dosage: TOTAL DAILY DOSE: 40 MEQ
     Route: 048
  6. MAVIK [Concomitant]
     Route: 048
  7. ALLOPURINOL [Concomitant]
     Route: 048
  8. ZYRTEC [Concomitant]
     Route: 048
  9. DOLOBID [Concomitant]
     Dosage: TOTAL DAILY DOSE: 1000 MG
  10. LASIX [Concomitant]
  11. VYTORIN [Concomitant]
  12. CENTRUM SILVER [Concomitant]
  13. TOPROL-XL [Concomitant]
     Route: 048
  14. IMODIUM [Concomitant]
     Indication: DIARRHOEA

REACTIONS (6)
  - ABDOMINAL ABSCESS [None]
  - DIARRHOEA [None]
  - DIVERTICULAR PERFORATION [None]
  - PNEUMOPERITONEUM [None]
  - RASH [None]
  - STOMATITIS [None]
